FAERS Safety Report 5704607-0 (Version None)
Quarter: 2008Q2

REPORT INFORMATION
  Report Type: 
  Country: None (occurrence: None)
  Receive Date: 20080409
  Receipt Date: 20080331
  Transmission Date: 20081010
  Serious: Yes (Other)
  Sender: FDA-Public Use
  Company Number: TPA2008A00325

PATIENT
  Age: 53 Year
  Sex: Female
  Weight: 136.0791 kg

DRUGS (8)
  1. ACTOS [Suspect]
     Indication: DIABETES MELLITUS
     Dosage: 15 MG, 1 IN 1 D, PER ORAL, 30 MG, 1 IN 1 D, PER ORAL, 45  MG, 1 IN 1 D, PER ORAL
     Route: 048
     Dates: end: 20070801
  2. ACTOS [Suspect]
     Indication: DIABETES MELLITUS
     Dosage: 15 MG, 1 IN 1 D, PER ORAL, 30 MG, 1 IN 1 D, PER ORAL, 45  MG, 1 IN 1 D, PER ORAL
     Route: 048
     Dates: start: 20040902
  3. BYETTA [Suspect]
     Dates: start: 20071129
  4. HUMALOG MIX 75/25 [Suspect]
     Dosage: 10 U, TOTAL DAILY DOSE, SQ
     Route: 058
     Dates: start: 20071129
  5. GLUCOVANCE [Suspect]
  6. GLIMEPIRIDE [Suspect]
  7. JANUMET [Suspect]
     Dosage: 100 MG, 2 IN 1 D
  8. JANUVIA (ALL OTHER THERAPEUTIC PRODUCTS) [Concomitant]

REACTIONS (4)
  - COLD SWEAT [None]
  - HYPOGLYCAEMIA [None]
  - INCORRECT DOSE ADMINISTERED [None]
  - SELF-MEDICATION [None]
